FAERS Safety Report 8601522-X (Version None)
Quarter: 2012Q3

REPORT INFORMATION
  Report Type: 
  Country: None (occurrence: None)
  Receive Date: 20120817
  Receipt Date: 20120813
  Transmission Date: 20120928
  Serious: Yes (Other)
  Sender: FDA-Public Use
  Company Number: US-PFIZER INC-2012197721

PATIENT
  Age: 65 Year
  Sex: Female
  Weight: 83.9 kg

DRUGS (3)
  1. PROZAC [Concomitant]
     Dosage: UNK
  2. LYRICA [Suspect]
     Indication: NEUROPATHY PERIPHERAL
     Dosage: 100 MG, 3X/DAY
     Route: 048
  3. PRENTAL [Concomitant]
     Dosage: UNK

REACTIONS (7)
  - TENDON RUPTURE [None]
  - GASTRIC DISORDER [None]
  - ROTATOR CUFF SYNDROME [None]
  - DIABETES MELLITUS [None]
  - MUSCLE RUPTURE [None]
  - BLOOD CHOLESTEROL ABNORMAL [None]
  - BLOOD GLUCOSE INCREASED [None]
